FAERS Safety Report 11762306 (Version 1)
Quarter: 2015Q4

REPORT INFORMATION
  Report Type: Report from Study
  Country: GB (occurrence: GB)
  Receive Date: 20151120
  Receipt Date: 20151120
  Transmission Date: 20160304
  Serious: Yes (Other)
  Sender: FDA-Public Use
  Company Number: GB-ABBVIE-15K-167-1501152-00

PATIENT
  Age: 60 Year
  Sex: Female
  Weight: 49 kg

DRUGS (3)
  1. HUMIRA [Suspect]
     Active Substance: ADALIMUMAB
     Indication: PSORIASIS
     Route: 058
     Dates: start: 20121114, end: 20150318
  2. FOLIC ACID. [Concomitant]
     Active Substance: FOLIC ACID
     Indication: PRODUCT USED FOR UNKNOWN INDICATION
     Dates: start: 20140616
  3. GABAPENTIN. [Concomitant]
     Active Substance: GABAPENTIN
     Indication: PRODUCT USED FOR UNKNOWN INDICATION
     Dates: start: 20150218

REACTIONS (6)
  - Vitamin B12 deficiency [Unknown]
  - Spinal cord disorder [Unknown]
  - Myelopathy [Unknown]
  - Neurological symptom [Unknown]
  - Blood disorder [Unknown]
  - Copper deficiency [Unknown]

NARRATIVE: CASE EVENT DATE: 20150318
